FAERS Safety Report 24595530 (Version 1)
Quarter: 2024Q4

REPORT INFORMATION
  Report Type: Report from Study
  Country: US (occurrence: US)
  Receive Date: 20241109
  Receipt Date: 20241109
  Transmission Date: 20250115
  Serious: Yes (Hospitalization, Disabling)
  Sender: ABBVIE
  Company Number: US-ABBVIE-5992360

PATIENT
  Age: 52 Year
  Sex: Female

DRUGS (1)
  1. BOTOX [Suspect]
     Active Substance: ONABOTULINUMTOXINA
     Indication: Migraine
     Dosage: TIME INTERVAL: AS NECESSARY
     Route: 065

REACTIONS (5)
  - Disability [Unknown]
  - Seizure [Unknown]
  - Off label use [Unknown]
  - Tremor [Unknown]
  - Dysgraphia [Unknown]

NARRATIVE: CASE EVENT DATE: 20240101
